FAERS Safety Report 20684269 (Version 1)
Quarter: 2022Q2

REPORT INFORMATION
  Report Type: Spontaneous
  Country: US (occurrence: None)
  Receive Date: 20220404
  Receipt Date: 20220404
  Transmission Date: 20220720
  Serious: No
  Sender: FDA-Public Use
  Company Number: None

PATIENT
  Age: 34 Year
  Sex: Female
  Weight: 96.75 kg

DRUGS (3)
  1. CITRULLINE [Suspect]
     Active Substance: CITRULLINE
     Dates: start: 20220402, end: 20220403
  2. SERTRALINE [Concomitant]
     Active Substance: SERTRALINE HYDROCHLORIDE
  3. TRAZODONE [Concomitant]
     Active Substance: TRAZODONE HYDROCHLORIDE

REACTIONS (3)
  - Application site pain [None]
  - Swelling face [None]
  - Application site burn [None]

NARRATIVE: CASE EVENT DATE: 20220402
